FAERS Safety Report 4773559-2 (Version None)
Quarter: 2005Q3

REPORT INFORMATION
  Report Type: 
  Country: None (occurrence: None)
  Receive Date: 20050920
  Receipt Date: 20050225
  Transmission Date: 20060218
  Serious: No
  Sender: FDA-Public Use
  Company Number: US-BRISTOL-MYERS SQUIBB COMPANY-12877114

PATIENT
  Sex: Female

DRUGS (2)
  1. BUSPAR [Suspect]
     Route: 048
     Dates: start: 20050221
  2. ANTIBIOTIC [Concomitant]

REACTIONS (2)
  - DYSGEUSIA [None]
  - ORAL FUNGAL INFECTION [None]
